FAERS Safety Report 5327904-X (Version None)
Quarter: 2007Q2

REPORT INFORMATION
  Report Type: 
  Country: None (occurrence: None)
  Receive Date: 20070517
  Receipt Date: 20070508
  Transmission Date: 20071010
  Serious: Yes (Other)
  Sender: FDA-Public Use
  Company Number: JP-PFIZER INC-2007038194

PATIENT
  Sex: Male

DRUGS (3)
  1. HALCION [Suspect]
     Route: 048
  2. ALESION [Suspect]
  3. ALCOHOL [Suspect]

REACTIONS (3)
  - HOMICIDE [None]
  - INTENTIONAL DRUG MISUSE [None]
  - PYROMANIA [None]
